FAERS Safety Report 7173254-9 (Version None)
Quarter: 2010Q4

REPORT INFORMATION
  Report Type: 
  Country: None (occurrence: None)
  Receive Date: 20101219
  Receipt Date: 20100224
  Transmission Date: 20110411
  Serious: No
  Sender: FDA-Public Use
  Company Number: US-AMGEN-KDL395061

PATIENT

DRUGS (7)
  1. ENBREL [Suspect]
     Indication: PRODUCT USED FOR UNKNOWN INDICATION
     Dosage: 50 ML, QWK
     Route: 058
  2. METHOTREXATE [Concomitant]
     Dosage: 2.5 MG, UNK
     Route: 048
  3. FOLIC ACID [Concomitant]
     Dosage: 1 MG, UNK
     Route: 048
  4. CALCIUM [Concomitant]
     Dosage: UNK UNK, UNK
     Route: 048
  5. MAGNESIUM [Concomitant]
     Dosage: 500 MG, UNK
     Route: 048
  6. VITAMIN B COMPLEX [Concomitant]
     Dosage: UNK UNK, UNK
     Route: 048
  7. ERGOCALCIFEROL [Concomitant]
     Dosage: 2000 IU, UNK
     Route: 048

REACTIONS (5)
  - INJECTION SITE ERYTHEMA [None]
  - INJECTION SITE PAIN [None]
  - INJECTION SITE RASH [None]
  - OEDEMA PERIPHERAL [None]
  - VOMITING [None]
